FAERS Safety Report 8160361-7 (Version None)
Quarter: 2012Q1

REPORT INFORMATION
  Report Type: 
  Country: None (occurrence: None)
  Receive Date: 20120223
  Receipt Date: 20120214
  Transmission Date: 20120608
  Serious: Yes (Hospitalization, Other)
  Sender: FDA-Public Use
  Company Number: CN-ASTRAZENECA-2012SE10192

PATIENT
  Age: 71 Year
  Sex: Male

DRUGS (8)
  1. WARFARIN SODIUM [Suspect]
     Indication: THROMBOSIS
     Dosage: 2.5 MG QD ONE WEEK AFTER SURGEY
     Route: 048
  2. ASPIRIN [Suspect]
     Indication: THROMBOSIS
     Dosage: 100-300 MG BEFORE SURGERY
     Route: 048
  3. OMEPRAZOLE [Suspect]
     Route: 048
  4. CLOPIDOGREL [Suspect]
     Indication: THROMBOSIS
     Dosage: 150 MG QD 3 DAYS BEFORE SURGERY
     Route: 048
  5. CLOPIDOGREL [Suspect]
     Dosage: 75 MG QD AFTER SURGERY
     Route: 048
  6. WARFARIN SODIUM [Suspect]
     Dosage: 0.625-1.25 MG PRN
     Route: 048
  7. CLOPIDOGREL [Suspect]
     Dosage: 300 MG QD 2H BEFORE SURGERY
     Route: 048
  8. ASPIRIN [Suspect]
     Dosage: 75 MG QD AFTER SURGERY
     Route: 048

REACTIONS (2)
  - MELAENA [None]
  - HAEMATEMESIS [None]
